FAERS Safety Report 16034739 (Version 1)
Quarter: 2019Q2

REPORT INFORMATION
  Report Type: Spontaneous
  Country: US (occurrence: US)
  Receive Date: 20190305
  Receipt Date: 20190305
  Transmission Date: 20190711
  Serious: Yes (Other)
  Sender: FDA-Public Use
  Company Number: None

PATIENT
  Age: 31 Year
  Sex: Female
  Weight: 65.25 kg

DRUGS (1)
  1. CIPROFLOXACIN. [Suspect]
     Active Substance: CIPROFLOXACIN
     Indication: INFECTION PROPHYLAXIS
     Dates: start: 20190207, end: 20190304

REACTIONS (9)
  - Burning sensation [None]
  - Emotional distress [None]
  - Rash erythematous [None]
  - Infusion site bruising [None]
  - Tendon pain [None]
  - Myalgia [None]
  - Mental impairment [None]
  - Pain [None]
  - Irritability [None]

NARRATIVE: CASE EVENT DATE: 20190227
